FAERS Safety Report 23322390 (Version 1)
Quarter: 2023Q4

REPORT INFORMATION
  Report Type: Spontaneous
  Country: US (occurrence: US)
  Receive Date: 20231220
  Receipt Date: 20231220
  Transmission Date: 20240110
  Serious: No
  Sender: FDA-Public Use
  Company Number: US-009507513-2311USA008720

PATIENT
  Age: 71 Year
  Sex: Male

DRUGS (2)
  1. BRIDION [Suspect]
     Active Substance: SUGAMMADEX
     Indication: Jejunostomy
     Dosage: 260 MILLIGRAM
     Dates: start: 2022
  2. BRIDION [Suspect]
     Active Substance: SUGAMMADEX
     Dosage: 120 UNK

REACTIONS (1)
  - Extra dose administered [Unknown]
